FAERS Safety Report 10039007 (Version 1)
Quarter: 2014Q1

REPORT INFORMATION
  Report Type: Spontaneous
  Country: US (occurrence: None)
  Receive Date: 20140306
  Receipt Date: 20140306
  Transmission Date: 20141002
  Serious: Yes (Other)
  Sender: FDA-Public Use
  Company Number: 163-21880-13063639

PATIENT
  Age: 65 Year
  Sex: Male

DRUGS (6)
  1. REVLIMID (LENALIDOMIDE) (25 MILLIGRAM, CAPSULES) [Suspect]
     Indication: PLASMA CELL MYELOMA
     Route: 048
     Dates: start: 201204
  2. LEVOTHYROXINE (LEVOTHYROXINE) (TABLETS) [Concomitant]
  3. BENADRYL ALLERGY ULTRATAB (BENADRYL ALLERGY) [Concomitant]
  4. LYRICA (PREGABALIN) [Concomitant]
  5. CRESTOR (ROSUVASTATIN) [Concomitant]
  6. DOXYCYCLINE (COXYCLINE) [Concomitant]

REACTIONS (4)
  - Seasonal allergy [None]
  - Sinus disorder [None]
  - Sinus congestion [None]
  - Rash [None]
